FAERS Safety Report 20955307 (Version 1)
Quarter: 2022Q2

REPORT INFORMATION
  Report Type: Spontaneous
  Country: US (occurrence: US)
  Receive Date: 20220614
  Receipt Date: 20220614
  Transmission Date: 20220721
  Serious: No
  Sender: FDA-Public Use
  Company Number: US-MLMSERVICE-20220318-3444033-1

PATIENT
  Sex: Female

DRUGS (1)
  1. HEMANGEOL [Suspect]
     Active Substance: PROPRANOLOL HYDROCHLORIDE
     Indication: Product used for unknown indication
     Dosage: UNK
     Route: 065

REACTIONS (5)
  - Throat tightness [Unknown]
  - Tongue discomfort [Unknown]
  - Swelling face [Unknown]
  - Product administered to patient of inappropriate age [Unknown]
  - Off label use [Unknown]
